FAERS Safety Report 5406036-6 (Version None)
Quarter: 2007Q3

REPORT INFORMATION
  Report Type: 
  Country: None (occurrence: None)
  Receive Date: 20070806
  Receipt Date: 20070731
  Transmission Date: 20080115
  Serious: Yes (Other)
  Sender: FDA-Public Use
  Company Number: A0667370A

PATIENT
  Age: 60 Year
  Sex: Female

DRUGS (2)
  1. LAMICTAL [Suspect]
     Indication: BIPOLAR DISORDER
     Dosage: 50MG PER DAY
     Route: 048
     Dates: start: 20070624
  2. XANAX [Concomitant]

REACTIONS (5)
  - ANXIETY [None]
  - CONVULSION [None]
  - DIZZINESS [None]
  - MUSCLE TIGHTNESS [None]
  - NAUSEA [None]
